FAERS Safety Report 6035381-9 (Version None)
Quarter: 2009Q1

REPORT INFORMATION
  Report Type: 
  Country: None (occurrence: None)
  Receive Date: 20090112
  Receipt Date: 20090112
  Transmission Date: 20090719
  Serious: Yes (Other)
  Sender: FDA-Public Use
  Company Number: None

PATIENT
  Sex: Female
  Weight: 86.1834 kg

DRUGS (2)
  1. FORADIL [Suspect]
     Indication: ASTHMA
     Dosage: 12 MG 1 A DAY ORAL
     Route: 048
     Dates: start: 20081001
  2. SPIRIVA [Suspect]
     Indication: ASTHMA
     Dosage: 18 MG 1 A DAY ORAL
     Route: 048
     Dates: start: 20081101

REACTIONS (4)
  - BRONCHIAL DISORDER [None]
  - COUGH [None]
  - LUNG DISORDER [None]
  - THROAT IRRITATION [None]
